FAERS Safety Report 16961323 (Version 1)
Quarter: 2019Q4

REPORT INFORMATION
  Report Type: Spontaneous
  Country: US (occurrence: US)
  Receive Date: 20191025
  Receipt Date: 20191025
  Transmission Date: 20200122
  Serious: Yes (Life-Threatening, Other)
  Sender: FDA-Public Use
  Company Number: NVSC2019US015716

PATIENT
  Age: 16 Year
  Sex: Female

DRUGS (1)
  1. HYDROXYCHLOROQUINE [Suspect]
     Active Substance: HYDROXYCHLOROQUINE
     Indication: SUICIDE ATTEMPT
     Dosage: 12 G (200 MG X 60 TABLETS)
     Route: 065

REACTIONS (4)
  - Overdose [Unknown]
  - Suicide attempt [Unknown]
  - Hypotension [Unknown]
  - Electrocardiogram QT prolonged [Unknown]
